FAERS Safety Report 18719351 (Version 1)
Quarter: 2021Q1

REPORT INFORMATION
  Report Type: Spontaneous
  Country: NL (occurrence: NL)
  Receive Date: 20210108
  Receipt Date: 20210108
  Transmission Date: 20210419
  Serious: Yes (Hospitalization)
  Sender: FDA-Public Use
  Company Number: NL-ENDO PHARMACEUTICALS INC-2020-008094

PATIENT
  Age: 36 Year
  Sex: Female

DRUGS (2)
  1. COLY?MYCIN M [Suspect]
     Active Substance: COLISTIMETHATE SODIUM
     Indication: ARTHRITIS INFECTIVE
     Dosage: 4.5 MILLION IU, BID
     Route: 042
  2. CEFTAZIDIME. [Concomitant]
     Active Substance: CEFTAZIDIME
     Indication: ARTHRITIS INFECTIVE

REACTIONS (1)
  - Bartter^s syndrome [Recovered/Resolved]
